FAERS Safety Report 17918268 (Version 1)
Quarter: 2020Q2

REPORT INFORMATION
  Report Type: Not Available
  Country: US (occurrence: US)
  Receive Date: 20200619
  Receipt Date: 20200619
  Transmission Date: 20200714
  Serious: Yes (Other)
  Sender: FDA-Public Use
  Company Number: US-NEUROCRINE BIOSCIENCES INC.-2020NBI01955

PATIENT
  Age: 88 Year
  Sex: Male

DRUGS (1)
  1. INGREZZA [Suspect]
     Active Substance: VALBENAZINE
     Indication: TARDIVE DYSKINESIA
     Route: 048
     Dates: start: 20191216

REACTIONS (3)
  - Fall [Recovered/Resolved]
  - Fall [Unknown]
  - Back pain [Unknown]

NARRATIVE: CASE EVENT DATE: 202006
